FAERS Safety Report 6426822-3 (Version None)
Quarter: 2009Q4

REPORT INFORMATION
  Report Type: 
  Country: None (occurrence: None)
  Receive Date: 20091104
  Receipt Date: 20091020
  Transmission Date: 20100525
  Serious: Yes (Life-Threatening, Other)
  Sender: FDA-Public Use
  Company Number: US-BAYER-200936400GPV

PATIENT
  Age: 67 Year
  Sex: Male

DRUGS (8)
  1. CLOPIDOGREL [Suspect]
     Indication: ACUTE CORONARY SYNDROME
  2. ASPIRIN [Suspect]
     Indication: ACUTE CORONARY SYNDROME
  3. NON-IONIC CONTRAST MEDIA [Suspect]
     Indication: ANGIOGRAM
     Route: 042
  4. HEPARIN [Suspect]
     Indication: ACUTE CORONARY SYNDROME
     Route: 042
  5. EPTIFIBATIDE [Suspect]
     Indication: PERCUTANEOUS CORONARY INTERVENTION
     Route: 040
  6. PREDNISONE TAB [Concomitant]
     Indication: PREMEDICATION
     Route: 048
  7. PREDNISONE TAB [Concomitant]
     Route: 048
  8. HISTAMINE-2 RECEPTOR BLOCKER [Concomitant]
     Indication: PREMEDICATION
     Route: 065

REACTIONS (8)
  - ANAPHYLACTIC SHOCK [None]
  - CARDIAC ARREST [None]
  - CARDIOGENIC SHOCK [None]
  - DIZZINESS [None]
  - HYPOTENSION [None]
  - PRURITUS [None]
  - URTICARIA [None]
  - VENTRICULAR FIBRILLATION [None]
